FAERS Safety Report 7118436-7 (Version None)
Quarter: 2010Q4

REPORT INFORMATION
  Report Type: 
  Country: None (occurrence: None)
  Receive Date: 20101020
  Receipt Date: 20100629
  Transmission Date: 20110411
  Serious: Yes (Other)
  Sender: FDA-Public Use
  Company Number: US-WYE-H16223410

PATIENT
  Age: 84 Year
  Sex: Female

DRUGS (8)
  1. ADVIL PM [Suspect]
     Indication: INSOMNIA
     Dosage: 2 LIQUIGELS DAILY AT BEDTIME, ORAL
     Route: 048
     Dates: start: 20100628, end: 20100628
  2. GALANTAMINE (GALANTAMINE) [Concomitant]
  3. NAMENDA [Concomitant]
  4. CARVEDILOL [Concomitant]
  5. LISINOPRIL [Concomitant]
  6. DIGOXIN [Concomitant]
  7. FUROSEMIDE [Concomitant]
  8. LORAZEPAM [Concomitant]

REACTIONS (1)
  - MUSCLE SPASMS [None]
